FAERS Safety Report 9758000 (Version 1)
Quarter: 2013Q4

REPORT INFORMATION
  Report Type: Spontaneous
  Country: DE (occurrence: DE)
  Receive Date: 20131216
  Receipt Date: 20131216
  Transmission Date: 20140711
  Serious: Yes (Other)
  Sender: FDA-Public Use
  Company Number: DE-AMGEN-DEUSP2013087013

PATIENT
  Age: 75 Year
  Sex: Female

DRUGS (1)
  1. PROLIA [Suspect]
     Indication: PRODUCT USED FOR UNKNOWN INDICATION
     Dosage: 60 MG, Q6MO
     Route: 065
     Dates: start: 20131119

REACTIONS (4)
  - Rash erythematous [Not Recovered/Not Resolved]
  - Dry throat [Unknown]
  - Mucosal dryness [Unknown]
  - Nausea [Unknown]
